FAERS Safety Report 21057174 (Version 1)
Quarter: 2022Q3

REPORT INFORMATION
  Report Type: Spontaneous
  Country: US (occurrence: None)
  Receive Date: 20220708
  Receipt Date: 20220708
  Transmission Date: 20221026
  Serious: Yes (Death)
  Sender: FDA-Public Use
  Company Number: None

PATIENT
  Age: 74 Year
  Sex: Female

DRUGS (1)
  1. BEBTELOVIMAB [Suspect]
     Active Substance: BEBTELOVIMAB

REACTIONS (5)
  - Condition aggravated [None]
  - Pain [None]
  - Dyspnoea [None]
  - Oxygen saturation decreased [None]
  - Cardiac arrest [None]

NARRATIVE: CASE EVENT DATE: 20220625
